FAERS Safety Report 7714493-5 (Version None)
Quarter: 2011Q3

REPORT INFORMATION
  Report Type: 
  Country: None (occurrence: None)
  Receive Date: 20110829
  Receipt Date: 20110819
  Transmission Date: 20111222
  Serious: Yes (Hospitalization)
  Sender: FDA-Public Use
  Company Number: FR-JNJFOC-20110808469

PATIENT
  Sex: Male

DRUGS (9)
  1. VELCADE [Suspect]
     Dosage: ON DAYS 1, 4, 8 AND 11
     Route: 041
     Dates: start: 20101211, end: 20101220
  2. VELCADE [Suspect]
     Indication: MULTIPLE MYELOMA
     Dosage: ON DAYS 1, 4, 8 AND 11
     Route: 041
     Dates: start: 20101231, end: 20110110
  3. VELCADE [Suspect]
     Dosage: ON DAYS 1, 4, 8 AND 11
     Route: 041
     Dates: start: 20110121, end: 20110131
  4. DOXORUBICIN HYDROCHLORIDE [Suspect]
     Route: 042
     Dates: start: 20101213, end: 20101213
  5. DEXAMETHASONE [Concomitant]
     Dosage: EVERY COURSE
     Route: 065
  6. DOXORUBICIN HYDROCHLORIDE [Suspect]
     Indication: MULTIPLE MYELOMA
     Route: 042
     Dates: start: 20110124, end: 20110124
  7. DOXORUBICIN HYDROCHLORIDE [Suspect]
     Route: 042
     Dates: start: 20110103, end: 20110103
  8. VELCADE [Suspect]
     Route: 041
  9. ONDANSETRON [Concomitant]
     Indication: PREMEDICATION
     Dosage: EVERY COURSE
     Route: 041

REACTIONS (2)
  - PALMAR-PLANTAR ERYTHRODYSAESTHESIA SYNDROME [None]
  - URTICARIA [None]
